FAERS Safety Report 11195615 (Version 1)
Quarter: 2015Q2

REPORT INFORMATION
  Report Type: Spontaneous
  Country: US (occurrence: None)
  Receive Date: 20150615
  Receipt Date: 20150615
  Transmission Date: 20150821
  Serious: Yes (Life-Threatening)
  Sender: FDA-Public Use
  Company Number: None

PATIENT
  Age: 63 Year
  Sex: Female

DRUGS (1)
  1. CUBICIN [Suspect]
     Active Substance: DAPTOMYCIN
     Indication: CELLULITIS
     Dosage: EVERY 24 HOURS
     Dates: start: 20150528, end: 20150607

REACTIONS (5)
  - White blood cell count decreased [None]
  - Hepatic enzyme increased [None]
  - Klebsiella infection [None]
  - Product quality issue [None]
  - Platelet count decreased [None]

NARRATIVE: CASE EVENT DATE: 20150528
